FAERS Safety Report 8261052-4 (Version None)
Quarter: 2012Q2

REPORT INFORMATION
  Report Type: 
  Country: None (occurrence: None)
  Receive Date: 20120405
  Receipt Date: 20120328
  Transmission Date: 20120825
  Serious: Yes (Hospitalization)
  Sender: FDA-Public Use
  Company Number: PHHY2012IT028522

PATIENT
  Age: 54 Year
  Sex: Female

DRUGS (1)
  1. STALEVO 100 [Suspect]
     Indication: PARKINSON'S DISEASE

REACTIONS (3)
  - PAIN IN EXTREMITY [None]
  - HYPOKINESIA [None]
  - BONE DENSITY ABNORMAL [None]
